FAERS Safety Report 13289621 (Version 14)
Quarter: 2018Q1

REPORT INFORMATION
  Report Type: Report from Study
  Country: CN (occurrence: CN)
  Receive Date: 20170303
  Receipt Date: 20180126
  Transmission Date: 20180508
  Serious: Yes (Hospitalization)
  Sender: FDA-Public Use
  Company Number: CN-ROCHE-1898646

PATIENT
  Age: 63 Year
  Sex: Female
  Weight: 59 kg

DRUGS (12)
  1. VITAMIN B6 [Concomitant]
     Active Substance: PYRIDOXINE HYDROCHLORIDE
     Indication: PROPHYLAXIS OF NAUSEA AND VOMITING
     Route: 065
     Dates: start: 20170210, end: 20170212
  2. CIMETIDINE [Concomitant]
     Active Substance: CIMETIDINE
     Dosage: INHIBITION OF GASTRIC ACID SECRETION
     Route: 065
     Dates: start: 20170210, end: 20170212
  3. CREATINE PHOSPHATE SODIUM [Concomitant]
     Active Substance: CREATINE
     Indication: PROPHYLAXIS
     Route: 065
     Dates: start: 20170210, end: 20170212
  4. DEXAMETHASONE SODIUM PHOSPHATE. [Concomitant]
     Active Substance: DEXAMETHASONE SODIUM PHOSPHATE
     Dosage: ANTIALLERGIC
     Route: 065
     Dates: start: 20170210, end: 20170211
  5. TROPISETRON HYDROCHLORIDE [Concomitant]
     Active Substance: TROPISETRON HYDROCHLORIDE
     Dosage: ANTIEMETIC
     Route: 065
     Dates: start: 20170210, end: 20170212
  6. POLYENE PHOSPHATIDYLCHOLINE [Concomitant]
     Active Substance: PHOSPHOLIPID
     Dosage: PREVENTION OF LIVER INJURY
     Route: 065
     Dates: start: 20170210, end: 20170212
  7. DOCETAXEL. [Suspect]
     Active Substance: DOCETAXEL
     Indication: HER-2 POSITIVE BREAST CANCER
     Dosage: MOST RECENT DOSE DATE PRIOR TO SAE: 10/FEB/2017 (120 MG)
     Route: 042
     Dates: start: 20170210
  8. PERTUZUMAB. [Suspect]
     Active Substance: PERTUZUMAB
     Indication: HER-2 POSITIVE BREAST CANCER
     Dosage: LOADING CASE?DATE OF MOST RECENT DOSE: 10/FEB/2017 (DOSE: 840 MG).
     Route: 042
     Dates: start: 20170210
  9. VITAMIN C [Concomitant]
     Active Substance: ASCORBIC ACID
     Indication: PROPHYLAXIS OF NAUSEA AND VOMITING
     Route: 065
     Dates: start: 20170210, end: 20170212
  10. MAGNESIUM ISOGLYCYRRHIZINATE [Concomitant]
     Active Substance: MAGNESIUM ISOGLYCYRRHIZINATE
     Dosage: PREVENTION OF LIVER INJURY
     Route: 065
     Dates: start: 20170210, end: 20170212
  11. LANSOPRAZOLE. [Concomitant]
     Active Substance: LANSOPRAZOLE
     Dosage: INHIBITION OF GASTRIC ACID SECRETION
     Route: 065
     Dates: start: 20170210, end: 20170212
  12. TRASTUZUMAB. [Suspect]
     Active Substance: TRASTUZUMAB
     Indication: HER-2 POSITIVE BREAST CANCER
     Dosage: LOADING DOSE?MOST RECENT DOSE DATE PRIOR TO SAE: 10/FEB/2017 (472 MG)
     Route: 042
     Dates: start: 20170210, end: 20170210

REACTIONS (1)
  - Bone marrow failure [Recovered/Resolved]

NARRATIVE: CASE EVENT DATE: 20170217
